FAERS Safety Report 7769028-8 (Version None)
Quarter: 2011Q3

REPORT INFORMATION
  Report Type: 
  Country: None (occurrence: None)
  Receive Date: 20110922
  Receipt Date: 20110714
  Transmission Date: 20111222
  Serious: No
  Sender: FDA-Public Use
  Company Number: US-ASTRAZENECA-2011SE42423

PATIENT
  Age: 52 Year
  Sex: Female

DRUGS (4)
  1. SEROQUEL [Suspect]
     Route: 048
     Dates: start: 20110713
  2. SEROQUEL [Suspect]
     Indication: BIPOLAR DISORDER
     Route: 048
     Dates: start: 20010101, end: 20110707
  3. SEROQUEL [Suspect]
     Route: 048
     Dates: start: 20110713
  4. SEROQUEL [Suspect]
     Indication: BIPOLAR I DISORDER
     Route: 048
     Dates: start: 20010101, end: 20110707

REACTIONS (6)
  - HEADACHE [None]
  - MALAISE [None]
  - VOMITING [None]
  - DRUG DOSE OMISSION [None]
  - TREMOR [None]
  - DRUG WITHDRAWAL SYNDROME [None]
